FAERS Safety Report 17957291 (Version 1)
Quarter: 2020Q2

REPORT INFORMATION
  Report Type: Spontaneous
  Country: US (occurrence: US)
  Receive Date: 20200629
  Receipt Date: 20200629
  Transmission Date: 20200714
  Serious: No
  Sender: FDA-Public Use
  Company Number: US-BRISTOL-MYERS SQUIBB COMPANY-BMS-2020-049625

PATIENT
  Age: 64 Year
  Sex: Female
  Weight: 83.4 kg

DRUGS (1)
  1. ELIQUIS [Suspect]
     Active Substance: APIXABAN
     Indication: DEEP VEIN THROMBOSIS
     Dosage: UNK UNK, BID
     Route: 048
     Dates: start: 20200620

REACTIONS (3)
  - Pain in extremity [Unknown]
  - Vein disorder [Unknown]
  - Erythema [Unknown]

NARRATIVE: CASE EVENT DATE: 20200620
